FAERS Safety Report 10169301 (Version 1)
Quarter: 2014Q2

REPORT INFORMATION
  Report Type: Spontaneous
  Country: US (occurrence: US)
  Receive Date: 20140513
  Receipt Date: 20140513
  Transmission Date: 20141212
  Serious: Yes (Hospitalization, Other)
  Sender: FDA-Public Use
  Company Number: US-ASTRAZENECA-2014SE30767

PATIENT
  Age: 69 Year
  Sex: Male
  Weight: 62.1 kg

DRUGS (9)
  1. SYMBICORT [Suspect]
     Indication: CHRONIC OBSTRUCTIVE PULMONARY DISEASE
     Dosage: 2 PUFFS BID
     Route: 055
     Dates: start: 201402
  2. PREDNISONE [Suspect]
     Route: 065
     Dates: start: 201402
  3. PREDNISONE [Suspect]
     Route: 065
  4. PREDNISONE [Suspect]
     Route: 065
  5. PREDNISONE [Suspect]
     Route: 065
  6. OXYGEN [Suspect]
     Route: 065
  7. CHEMOTHERAPY [Suspect]
     Route: 065
  8. SPIRIVA [Concomitant]
     Dates: start: 201108
  9. ZOLOFT [Concomitant]
     Indication: ANXIETY
     Dates: start: 201108

REACTIONS (4)
  - Pneumonia [Unknown]
  - Syncope [Unknown]
  - Lung infiltration [Unknown]
  - Epistaxis [Unknown]
